FAERS Safety Report 20695556 (Version 14)
Quarter: 2023Q1

REPORT INFORMATION
  Report Type: Report from Study
  Country: AR (occurrence: AR)
  Receive Date: 20220411
  Receipt Date: 20230331
  Transmission Date: 20230417
  Serious: Yes (Other)
  Sender: FDA-Public Use
  Company Number: AR-NOVARTISPH-NVSC2022AR068206

PATIENT
  Age: 69 Year
  Sex: Female

DRUGS (3)
  1. KISQALI [Suspect]
     Active Substance: RIBOCICLIB
     Indication: Breast cancer metastatic
     Dosage: 600 MG, QD
     Route: 048
     Dates: start: 20211213
  2. KISQALI [Suspect]
     Active Substance: RIBOCICLIB
     Dosage: 400 MG, QD
     Route: 048
     Dates: start: 20211213
  3. FULVESTRANT [Suspect]
     Active Substance: FULVESTRANT
     Indication: Breast cancer metastatic
     Dosage: 250 MG, QMO (INJECTABLE SOLUTION)
     Route: 058
     Dates: start: 20211213

REACTIONS (43)
  - Lung cyst [Recovering/Resolving]
  - Rheumatoid arthritis [Unknown]
  - Throat tightness [Unknown]
  - Renal cyst [Unknown]
  - Metastases to lung [Unknown]
  - Malignant neoplasm progression [Unknown]
  - Pneumonia [Unknown]
  - Illness [Unknown]
  - Thyroid disorder [Unknown]
  - Influenza [Unknown]
  - Fall [Unknown]
  - Joint swelling [Unknown]
  - Nervousness [Unknown]
  - Feeling abnormal [Unknown]
  - Drug intolerance [Unknown]
  - Gait disturbance [Unknown]
  - Contusion [Unknown]
  - Bronchial disorder [Unknown]
  - Mobility decreased [Unknown]
  - Hypertension [Unknown]
  - Epistaxis [Unknown]
  - Breast mass [Unknown]
  - Dysuria [Unknown]
  - Conjunctivitis [Unknown]
  - Decreased immune responsiveness [Unknown]
  - Visual impairment [Unknown]
  - Colitis [Unknown]
  - Arthralgia [Unknown]
  - Arthritis [Unknown]
  - Malaise [Unknown]
  - Pain [Unknown]
  - Peripheral swelling [Unknown]
  - Oedema peripheral [Unknown]
  - Diarrhoea [Unknown]
  - Vomiting [Unknown]
  - Dyspnoea [Unknown]
  - Dizziness [Unknown]
  - Asthenia [Unknown]
  - Headache [Unknown]
  - Cough [Unknown]
  - Fracture [Unknown]
  - Intentional product use issue [Unknown]
  - Incorrect dose administered [Unknown]

NARRATIVE: CASE EVENT DATE: 20211201
